FAERS Safety Report 19564852 (Version 1)
Quarter: 2021Q3

REPORT INFORMATION
  Report Type: Spontaneous
  Country: JP (occurrence: JP)
  Receive Date: 20210716
  Receipt Date: 20210716
  Transmission Date: 20211014
  Serious: Yes (Death, Hospitalization, Other)
  Sender: FDA-Public Use
  Company Number: JP-IPCA LABORATORIES LIMITED-IPC-2021-JP-001354

PATIENT

DRUGS (10)
  1. CARBOCISTEINE [Concomitant]
     Active Substance: CARBOCYSTEINE
     Indication: OROPHARYNGEAL PAIN
  2. TRAMADOL HYDROCHLORIDE TABLET [Suspect]
     Active Substance: TRAMADOL HYDROCHLORIDE
     Indication: SPINAL OSTEOARTHRITIS
     Dosage: 1 DOSAGE FORM, QID
     Route: 065
  3. PARACETAMOL TABLET [Suspect]
     Active Substance: ACETAMINOPHEN
     Indication: SPINAL OSTEOARTHRITIS
     Dosage: 1 DOSAGE FORM, QID
     Route: 065
  4. CARBOCISTEINE [Concomitant]
     Active Substance: CARBOCYSTEINE
     Indication: RHINITIS
     Dosage: UNK
     Route: 065
  5. DEXTROMETHORPHAN [Concomitant]
     Active Substance: DEXTROMETHORPHAN
     Indication: COUGH
  6. TRANEXAMIC ACID. [Concomitant]
     Active Substance: TRANEXAMIC ACID
     Indication: RHINITIS
     Dosage: UNK
     Route: 065
  7. TRANEXAMIC ACID. [Concomitant]
     Active Substance: TRANEXAMIC ACID
     Indication: OROPHARYNGEAL PAIN
  8. TRAMADOL AND ACETAMINOPHEN (37.5/325)MG TABLETS [Suspect]
     Active Substance: ACETAMINOPHEN\TRAMADOL HYDROCHLORIDE
     Indication: SPINAL OSTEOARTHRITIS
     Dosage: 1 DOSAGE FORM, QID
     Route: 065
  9. CARBOCISTEINE [Concomitant]
     Active Substance: CARBOCYSTEINE
     Indication: PRODUCTIVE COUGH
  10. DEXTROMETHORPHAN [Concomitant]
     Active Substance: DEXTROMETHORPHAN
     Indication: PRODUCTIVE COUGH
     Dosage: UNK
     Route: 065

REACTIONS (6)
  - Hypoglycaemia [Fatal]
  - Nephrosclerosis [Fatal]
  - Cardiac hypertrophy [Fatal]
  - Aortic arteriosclerosis [Fatal]
  - Cardiac arrest [Fatal]
  - Loss of consciousness [Fatal]
